FAERS Safety Report 6577567-0 (Version None)
Quarter: 2010Q1

REPORT INFORMATION
  Report Type: 
  Country: None (occurrence: None)
  Receive Date: 20100211
  Receipt Date: 20100127
  Transmission Date: 20100710
  Serious: Yes (Other)
  Sender: FDA-Public Use
  Company Number: US-BAYER-201013887GPV

PATIENT

DRUGS (10)
  1. ALEMTUZUMAB [Suspect]
     Indication: MYCOSIS FUNGOIDES REFRACTORY
     Dosage: ON DAY 1
     Route: 042
  2. ALEMTUZUMAB [Suspect]
     Dosage: ON DAY 3
     Route: 042
  3. ALEMTUZUMAB [Suspect]
     Dosage: ON DAY 5
     Route: 042
  4. ALEMTUZUMAB [Suspect]
     Route: 042
  5. HYDROCORTISONE [Concomitant]
     Indication: PREMEDICATION
  6. ACETAMINOPHEN [Concomitant]
     Indication: PREMEDICATION
  7. DIPHENHYDRAMINE [Concomitant]
     Indication: PREMEDICATION
  8. TRIMETHOPRIM + SULFAMETHOXAZOLE [Concomitant]
     Indication: PROPHYLAXIS
     Dosage: 160 MG/ 800 MG TWICE DAILY THREE TIMES PER WEEK
  9. FLUCONAZOLE [Concomitant]
     Indication: PROPHYLAXIS
     Dosage: TOTAL DAILY DOSE: 200 MG
  10. ACYCLOVIR [Concomitant]
     Indication: PROPHYLAXIS
     Dosage: TOTAL DAILY DOSE: 400 MG

REACTIONS (1)
  - GASTROINTESTINAL OBSTRUCTION [None]
